FAERS Safety Report 23662135 (Version 1)
Quarter: 2024Q1

REPORT INFORMATION
  Report Type: Spontaneous
  Country: US (occurrence: None)
  Receive Date: 20240321
  Receipt Date: 20240321
  Transmission Date: 20240410
  Serious: No
  Sender: FDA-Public Use
  Company Number: None

PATIENT
  Age: 71 Year
  Sex: Female

DRUGS (1)
  1. AUSTEDO [Suspect]
     Active Substance: DEUTETRABENAZINE
     Indication: Tardive dyskinesia
     Dosage: OTHER QUANTITY : 1 T BID AND 2HS MG;?FREQUENCY : DAILY;?
     Route: 048
     Dates: start: 20240219

REACTIONS (1)
  - Dry mouth [None]

NARRATIVE: CASE EVENT DATE: 20240313
